FAERS Safety Report 6366443-4 (Version None)
Quarter: 2009Q3

REPORT INFORMATION
  Report Type: 
  Country: None (occurrence: None)
  Receive Date: 20090915
  Receipt Date: 20090901
  Transmission Date: 20100115
  Serious: Yes (Other)
  Sender: FDA-Public Use
  Company Number: 8051189

PATIENT
  Age: 4 Month
  Sex: Female
  Weight: 7.5 kg

DRUGS (2)
  1. KEPPRA [Suspect]
     Dosage: 350 MG PO
     Route: 048
  2. OXCARBAZEPIN [Suspect]
     Dosage: 160 MG PO
     Route: 048

REACTIONS (3)
  - BLOOD PRESSURE DIASTOLIC DECREASED [None]
  - DRUG TOXICITY [None]
  - WRONG DRUG ADMINISTERED [None]
